FAERS Safety Report 5692139-8 (Version None)
Quarter: 2008Q2

REPORT INFORMATION
  Report Type: 
  Country: None (occurrence: None)
  Receive Date: 20080402
  Receipt Date: 20080318
  Transmission Date: 20081010
  Serious: Yes (Congenital Anomaly)
  Sender: FDA-Public Use
  Company Number: A0687250A

PATIENT
  Sex: Male

DRUGS (11)
  1. PAXIL CR [Suspect]
     Indication: ANXIETY
     Dosage: 25MG UNKNOWN
     Dates: start: 20050204, end: 20050310
  2. PAXIL [Suspect]
     Indication: ANXIETY
     Dosage: 30MG PER DAY
     Dates: start: 19991201, end: 20050801
  3. PAROXETINE HCL [Suspect]
     Indication: ANXIETY
     Dosage: 10MG UNKNOWN
     Dates: start: 20050328, end: 20050906
  4. SYNTHROID [Concomitant]
     Indication: HYPOTHYROIDISM
     Dosage: 175MCG PER DAY
     Dates: start: 19940101
  5. VITAMIN AND MINERAL PRENATAL SUPPLEMENT W/ FOLIC ACID CAP [Concomitant]
     Indication: PREGNANCY
     Dates: start: 20050801
  6. CELEXA [Concomitant]
     Indication: ANXIETY
     Dosage: 10MG PER DAY
     Dates: start: 20051101
  7. ZOLOFT [Concomitant]
  8. SUDAFED 12 HOUR [Concomitant]
  9. CITALOPRAM [Concomitant]
  10. TYLENOL (CAPLET) [Concomitant]
  11. PROZAC [Concomitant]

REACTIONS (20)
  - APNOEA [None]
  - ATRIAL SEPTAL DEFECT [None]
  - BACTERIAL SEPSIS [None]
  - BRONCHOMALACIA [None]
  - CONGENITAL ANOMALY [None]
  - DRUG EXPOSURE DURING PREGNANCY [None]
  - EXOMPHALOS [None]
  - HEART DISEASE CONGENITAL [None]
  - LARYNGOMALACIA [None]
  - LEFT VENTRICULAR DYSFUNCTION [None]
  - LUNG DISORDER [None]
  - MECHANICAL VENTILATION [None]
  - PATENT DUCTUS ARTERIOSUS [None]
  - PERSISTENT FOETAL CIRCULATION [None]
  - PNEUMONIA KLEBSIELLA [None]
  - RESPIRATORY FAILURE [None]
  - RIGHT VENTRICULAR HYPERTROPHY [None]
  - TRACHEAL DISORDER [None]
  - TRACHEOMALACIA [None]
  - VENTRICULAR SEPTAL DEFECT [None]
